FAERS Safety Report 8853149 (Version 1)
Quarter: 2012Q4

REPORT INFORMATION
  Report Type: 
  Country: US (occurrence: US)
  Receive Date: 20121022
  Receipt Date: 20121022
  Transmission Date: 20130627
  Serious: No
  Sender: FDA-Public Use
  Company Number: US-TEVA-365740USA

PATIENT
  Sex: Male
  Weight: 88.53 kg

DRUGS (3)
  1. NUVIGIL [Suspect]
     Indication: ASTHENIA
     Dosage: QAM
     Route: 048
  2. CITALOPRAM [Concomitant]
     Indication: DEPRESSION
     Dosage: 40 Milligram Daily;
     Route: 048
  3. ATIVAN [Concomitant]
     Indication: ANXIETY
     Dosage: PRN
     Route: 048

REACTIONS (12)
  - Photophobia [Recovering/Resolving]
  - Feeling cold [Recovering/Resolving]
  - Hot flush [Recovering/Resolving]
  - Dehydration [Recovering/Resolving]
  - Migraine [Not Recovered/Not Resolved]
  - Nausea [Recovering/Resolving]
  - Vomiting [Recovering/Resolving]
  - Discomfort [Recovering/Resolving]
  - Musculoskeletal discomfort [Recovering/Resolving]
  - Dental discomfort [Recovering/Resolving]
  - Off label use [Unknown]
  - Incorrect dose administered [Unknown]
